FAERS Safety Report 21927479 (Version 1)
Quarter: 2023Q1

REPORT INFORMATION
  Report Type: Spontaneous
  Country: JP (occurrence: None)
  Receive Date: 20230130
  Receipt Date: 20230130
  Transmission Date: 20230418
  Serious: Yes (Other)
  Sender: FDA-Public Use
  Company Number: 2023A023997

PATIENT
  Age: 76 Year
  Sex: Male

DRUGS (1)
  1. OMEPRAZOLE [Suspect]
     Active Substance: OMEPRAZOLE
     Indication: Gastroduodenal ulcer
     Route: 048

REACTIONS (2)
  - Gastric polyps [Recovered/Resolved]
  - Polyp [Recovered/Resolved]
